FAERS Safety Report 6591234-9 (Version None)
Quarter: 2010Q1

REPORT INFORMATION
  Report Type: 
  Country: None (occurrence: None)
  Receive Date: 20100219
  Receipt Date: 20100211
  Transmission Date: 20100710
  Serious: Yes (Hospitalization, Other)
  Sender: FDA-Public Use
  Company Number: PHHY2010GB07397

PATIENT
  Sex: Male
  Weight: 86 kg

DRUGS (1)
  1. VOLTAREN [Suspect]
     Indication: ARTHRITIS
     Dosage: 150 MG/DAY
     Dates: start: 19960101

REACTIONS (4)
  - ACUTE RESPIRATORY DISTRESS SYNDROME [None]
  - COLECTOMY [None]
  - POST-TRAUMATIC STRESS DISORDER [None]
  - WEIGHT DECREASED [None]
